FAERS Safety Report 20963513 (Version 2)
Quarter: 2022Q2

REPORT INFORMATION
  Report Type: Spontaneous
  Country: JP (occurrence: JP)
  Receive Date: 20220615
  Receipt Date: 20220623
  Transmission Date: 20220720
  Serious: Yes (Hospitalization, Other)
  Sender: FDA-Public Use
  Company Number: JP-TAKEDA-2022TEU006203

PATIENT
  Age: 64 Year
  Sex: Male

DRUGS (2)
  1. MIDODRINE [Suspect]
     Active Substance: MIDODRINE
     Indication: Orthostatic hypotension
     Dosage: UNK
     Route: 048
  2. MIDODRINE [Suspect]
     Active Substance: MIDODRINE
     Dosage: 3 MILLIGRAM, QD
     Route: 048

REACTIONS (1)
  - Leukoencephalopathy [Unknown]
